FAERS Safety Report 16015494 (Version 1)
Quarter: 2019Q1

REPORT INFORMATION
  Report Type: Spontaneous
  Country: CA (occurrence: CA)
  Receive Date: 20190228
  Receipt Date: 20190228
  Transmission Date: 20190418
  Serious: Yes (Other)
  Sender: FDA-Public Use
  Company Number: CA-AUROBINDO-AUR-APL-2019-010352

PATIENT

DRUGS (1)
  1. CEFUROXIME. [Suspect]
     Active Substance: CEFUROXIME
     Indication: SINUSITIS
     Dosage: 1 DOSAGE FORM 2 EVERY 1 DAY
     Route: 048

REACTIONS (2)
  - Disorientation [Recovered/Resolved]
  - Confusional state [Recovered/Resolved]
